FAERS Safety Report 5797388-6 (Version None)
Quarter: 2008Q3

REPORT INFORMATION
  Report Type: 
  Country: None (occurrence: None)
  Receive Date: 20080701
  Receipt Date: 20080623
  Transmission Date: 20090109
  Serious: No
  Sender: FDA-Public Use
  Company Number: US-BOEHRINGER INGELHEIM GMBH, GERMANY-2008-BP-09899BP

PATIENT
  Sex: Male

DRUGS (4)
  1. COMBIVENT [Suspect]
     Indication: EMPHYSEMA
  2. ATROVENT HFA [Suspect]
  3. SPIRIVA [Suspect]
     Dates: start: 20060101
  4. FORADIL [Concomitant]

REACTIONS (1)
  - DRUG INEFFECTIVE [None]
